FAERS Safety Report 8388040-1 (Version None)
Quarter: 2012Q2

REPORT INFORMATION
  Report Type: 
  Country: None (occurrence: None)
  Receive Date: 20120525
  Receipt Date: 20120514
  Transmission Date: 20120825
  Serious: Yes (Hospitalization, Other)
  Sender: FDA-Public Use
  Company Number: IT-ELI_LILLY_AND_COMPANY-IT201205005617

PATIENT
  Age: 41 Year
  Sex: Female

DRUGS (3)
  1. ANTIHYPERTENSIVES [Concomitant]
     Dosage: UNK, UNKNOWN
     Route: 048
  2. GEMCITABINE HYDROCHLORIDE [Suspect]
     Indication: LEIOMYOSARCOMA
     Dosage: 1000 MG/M2, ON DAYS 1, 8 AND 15 EVERY 4 WEEKS
     Route: 042
     Dates: start: 20080715, end: 20081007
  3. THERAPEUTIC RADIOPHARMACEUTICALS [Concomitant]
     Dosage: UNK, UNKNOWN
     Dates: start: 20080801

REACTIONS (2)
  - HYPERTENSION [None]
  - POSTERIOR REVERSIBLE ENCEPHALOPATHY SYNDROME [None]
